FAERS Safety Report 15073435 (Version 2)
Quarter: 2018Q3

REPORT INFORMATION
  Report Type: Spontaneous
  Country: US (occurrence: US)
  Receive Date: 20180627
  Receipt Date: 20180724
  Transmission Date: 20181010
  Serious: No
  Sender: FDA-Public Use
  Company Number: US-PFIZER INC-2018257084

PATIENT
  Age: 54 Year
  Sex: Female

DRUGS (1)
  1. XELJANZ [Suspect]
     Active Substance: TOFACITINIB CITRATE
     Dosage: 5 MG, 2X/DAY
     Route: 048
     Dates: start: 20180501, end: 20180623

REACTIONS (2)
  - Headache [Unknown]
  - Rash pruritic [Unknown]

NARRATIVE: CASE EVENT DATE: 20180623
